FAERS Safety Report 6269499-2 (Version None)
Quarter: 2009Q3

REPORT INFORMATION
  Report Type: 
  Country: None (occurrence: None)
  Receive Date: 20090714
  Receipt Date: 20090703
  Transmission Date: 20100115
  Serious: Yes (Disabling)
  Sender: FDA-Public Use
  Company Number: 2009AP002710

PATIENT
  Sex: Female

DRUGS (2)
  1. SERTRALINE HYDROCHLORIDE [Suspect]
     Dosage: 100 MG;QD; PO
     Route: 048
  2. IBUPROFEN [Suspect]
     Dosage: PO
     Route: 048

REACTIONS (1)
  - OSTEONECROSIS [None]
